FAERS Safety Report 5518304-8 (Version None)
Quarter: 2007Q4

REPORT INFORMATION
  Report Type: 
  Country: None (occurrence: None)
  Receive Date: 20071114
  Receipt Date: 20071114
  Transmission Date: 20080405
  Serious: No
  Sender: FDA-Public Use
  Company Number: None

PATIENT
  Age: 38 Year
  Sex: Male
  Weight: 117.9352 kg

DRUGS (1)
  1. PRILOSEC OTC [Suspect]
     Indication: DYSPEPSIA
     Dosage: ONE PILL EVERY FEW DAYS PO
     Route: 048
     Dates: start: 20060402, end: 20071109

REACTIONS (4)
  - DYSPEPSIA [None]
  - FLATULENCE [None]
  - STOMACH DISCOMFORT [None]
  - VOMITING [None]
